FAERS Safety Report 5115602-7 (Version None)
Quarter: 2006Q3

REPORT INFORMATION
  Report Type: 
  Country: None (occurrence: None)
  Receive Date: 20060925
  Receipt Date: 20060917
  Transmission Date: 20061208
  Serious: Yes (Other)
  Sender: FDA-Public Use
  Company Number: 2006111630

PATIENT
  Sex: Female

DRUGS (1)
  1. DRAMAMINE [Suspect]
     Dosage: 5 TABLETS / TOOK 5 MORE AN HOUR LATER

REACTIONS (3)
  - DIZZINESS [None]
  - INCORRECT DOSE ADMINISTERED [None]
  - NAUSEA [None]
